FAERS Safety Report 4382337-8 (Version None)
Quarter: 2004Q2

REPORT INFORMATION
  Report Type: 
  Country: None (occurrence: None)
  Receive Date: 20040616
  Receipt Date: 20040604
  Transmission Date: 20050107
  Serious: No
  Sender: FDA-Public Use
  Company Number: 2004-116541-NL

PATIENT
  Age: 50 Year
  Sex: Female

DRUGS (3)
  1. MIRTAZAPINE [Suspect]
     Indication: DEPRESSION
     Dosage: 30 MG QD ORAL
     Route: 048
     Dates: start: 20040202, end: 20040306
  2. TRISEQUENS [Suspect]
     Dosage: 1 DF QD ORAL
     Route: 048
     Dates: start: 20040108, end: 20040306
  3. THYROXINE SODIUM [Concomitant]

REACTIONS (4)
  - HAEMORRHAGIC CEREBRAL INFARCTION [None]
  - HEADACHE [None]
  - TINNITUS [None]
  - VERTIGO [None]
